FAERS Safety Report 12835494 (Version 2)
Quarter: 2016Q4

REPORT INFORMATION
  Report Type: Spontaneous
  Country: US (occurrence: US)
  Receive Date: 20161011
  Receipt Date: 20161115
  Transmission Date: 20170207
  Serious: Yes (Other)
  Sender: FDA-Public Use
  Company Number: US-AMGEN-USASP2016137175

PATIENT
  Age: 65 Year
  Sex: Female
  Weight: 48.53 kg

DRUGS (1)
  1. PROLIA [Suspect]
     Active Substance: DENOSUMAB
     Indication: OSTEOPOROSIS POSTMENOPAUSAL
     Dosage: 60 MG (IN 1 ML), Q6MO
     Route: 058
     Dates: start: 20160323

REACTIONS (8)
  - Dry skin [Not Recovered/Not Resolved]
  - Rash [Unknown]
  - Inflammation [Not Recovered/Not Resolved]
  - Pruritus [Unknown]
  - Dermatitis [Not Recovered/Not Resolved]
  - Condition aggravated [Not Recovered/Not Resolved]
  - Skin haemorrhage [Not Recovered/Not Resolved]
  - Skin fissures [Not Recovered/Not Resolved]

NARRATIVE: CASE EVENT DATE: 2016
